FAERS Safety Report 5507074-5 (Version None)
Quarter: 2007Q4

REPORT INFORMATION
  Report Type: 
  Country: None (occurrence: None)
  Receive Date: 20071102
  Receipt Date: 20071025
  Transmission Date: 20080405
  Serious: Yes (Life-Threatening, Hospitalization)
  Sender: FDA-Public Use
  Company Number: 2007S1000483

PATIENT
  Sex: Female

DRUGS (2)
  1. CUBICIN [Suspect]
     Indication: POSTOPERATIVE WOUND INFECTION
  2. LABETALOL HCL [Concomitant]

REACTIONS (1)
  - VENTRICULAR FIBRILLATION [None]
